FAERS Safety Report 11653544 (Version 2)
Quarter: 2015Q4

REPORT INFORMATION
  Report Type: Report from Study
  Country: KR (occurrence: KR)
  Receive Date: 20151022
  Receipt Date: 20151030
  Transmission Date: 20160304
  Serious: Yes (Hospitalization)
  Sender: FDA-Public Use
  Company Number: KR-B.I. PHARMACEUTICALS,INC./RIDGEFIELD-2015-BI-57172RK

PATIENT
  Age: 75 Year
  Sex: Male
  Weight: 60 kg

DRUGS (3)
  1. NEURACETAM [Concomitant]
     Indication: CEREBRAL INFARCTION
     Dosage: 1600 MG
     Route: 048
     Dates: start: 20111113, end: 20150418
  2. LANSTON [Concomitant]
     Active Substance: LANSOPRAZOLE
     Indication: ABDOMINAL PAIN UPPER
     Dosage: 15 MG
     Route: 048
     Dates: start: 20150402, end: 20150418
  3. PRADAXA [Suspect]
     Active Substance: DABIGATRAN ETEXILATE MESYLATE
     Indication: ATRIAL FIBRILLATION
     Dosage: 220 MG
     Route: 048
     Dates: start: 20141211, end: 20150418

REACTIONS (1)
  - Cerebral infarction [Recovered/Resolved with Sequelae]

NARRATIVE: CASE EVENT DATE: 20150418
